FAERS Safety Report 5444862-8 (Version None)
Quarter: 2007Q3

REPORT INFORMATION
  Report Type: 
  Country: None (occurrence: None)
  Receive Date: 20070906
  Receipt Date: 20070827
  Transmission Date: 20080115
  Serious: Yes (Hospitalization)
  Sender: FDA-Public Use
  Company Number: HU-ROCHE-513481

PATIENT
  Age: 79 Year
  Sex: Female

DRUGS (5)
  1. BONIVA [Suspect]
     Indication: DRUG USE FOR UNKNOWN INDICATION
     Route: 042
     Dates: start: 20070813, end: 20070813
  2. RENITEC [Concomitant]
     Dosage: DOSAGE REPORTED AS 2X1.
     Route: 048
  3. NORMODIPINE [Concomitant]
     Dosage: DOSAGE REPORTED AS 1X1.
     Route: 048
  4. NITRODERM [Concomitant]
     Route: 061
  5. AMILORIDE HCL AND HYDROCHLOROTHIAZIDE [Concomitant]
     Route: 048

REACTIONS (1)
  - PARESIS [None]
